FAERS Safety Report 15736556 (Version 1)
Quarter: 2018Q4

REPORT INFORMATION
  Report Type: Report from Study
  Country: ZA (occurrence: ZA)
  Receive Date: 20181218
  Receipt Date: 20181218
  Transmission Date: 20190205
  Serious: Yes (Other)
  Sender: FDA-Public Use
  Company Number: ZA-MYLANLABS-2018M1091523

PATIENT
  Age: 36 Year
  Sex: Female

DRUGS (2)
  1. WARFARIN [Suspect]
     Active Substance: WARFARIN
     Indication: ANTICOAGULANT THERAPY
     Dosage: SCHEDULED TO RECEIVE FROM WEEK 1 TO WEEK 6 OF GESTATION FOLLOWED BY WEEK 12 TO WEEK 36 OF GESTATION
     Route: 065
  2. HEPARIN [Suspect]
     Active Substance: HEPARIN SODIUM
     Indication: ANTICOAGULANT THERAPY
     Dosage: SCHEDULED TO RECEIVE FROM WEEK 6 TO WEEK 12 OF GESTATION AND CONTINUED FURTHER FROM WEEK 36 OF GE...
     Route: 041

REACTIONS (2)
  - Anticoagulation drug level above therapeutic [Unknown]
  - Maternal exposure during pregnancy [Recovered/Resolved]
